FAERS Safety Report 5954114-5 (Version None)
Quarter: 2008Q4

REPORT INFORMATION
  Report Type: 
  Country: None (occurrence: None)
  Receive Date: 20081117
  Receipt Date: 20081110
  Transmission Date: 20090506
  Serious: Yes (Disabling)
  Sender: FDA-Public Use
  Company Number: GB-RANBAXY-2008RR-19211

PATIENT
  Age: 5 Year
  Sex: Male

DRUGS (1)
  1. BISACODYL [Suspect]
     Indication: CONSTIPATION
     Dosage: 5 MG, UNK
     Route: 048
     Dates: start: 20071017, end: 20080801

REACTIONS (4)
  - ENURESIS [None]
  - HALLUCINATION [None]
  - NIGHTMARE [None]
  - WHEEZING [None]
